FAERS Safety Report 10985052 (Version 1)
Quarter: 2015Q1

REPORT INFORMATION
  Report Type: Spontaneous
  Country: US (occurrence: None)
  Receive Date: 20150313
  Receipt Date: 20150313
  Transmission Date: 20150721
  Serious: Yes (Hospitalization)
  Sender: FDA-Public Use
  Company Number: 1402515

PATIENT
  Age: 43 Year
  Sex: Female

DRUGS (6)
  1. ALBUTEROL SULFATE (SALBUTAMOL SULFATE (INHALED NEBULIZER) [Concomitant]
  2. SINGULAIR [Concomitant]
     Active Substance: MONTELUKAST SODIUM
  3. EPINEPHRINE. [Concomitant]
     Active Substance: EPINEPHRINE
  4. XOLAIR [Suspect]
     Active Substance: OMALIZUMAB
     Indication: ASTHMA
     Dosage: 1 IN 2 WK
     Route: 058
     Dates: start: 201401
  5. ADVAIR DISKUS (FLUTICASONE PROPIONATE, SALMETEROL XINAFOATE) [Concomitant]
  6. PROAIR (UNITED STATES) (SALBUTAMOL SULFATE) [Concomitant]

REACTIONS (1)
  - Hypersensitivity [None]

NARRATIVE: CASE EVENT DATE: 20140401
